FAERS Safety Report 9704149 (Version 2)
Quarter: 2014Q3

REPORT INFORMATION
  Report Type: Spontaneous
  Country: US (occurrence: US)
  Receive Date: 20131122
  Receipt Date: 20140805
  Transmission Date: 20150326
  Serious: Yes (Hospitalization)
  Sender: FDA-Public Use
  Company Number: US-GLAXOSMITHKLINE-A1027467A

PATIENT
  Age: 73 Year
  Sex: Female

DRUGS (6)
  1. ATORVASTATIN [Concomitant]
     Active Substance: ATORVASTATIN
  2. LISINOPRIL. [Concomitant]
     Active Substance: LISINOPRIL
  3. ATIVAN [Concomitant]
     Active Substance: LORAZEPAM
  4. WELLBUTRIN SR [Suspect]
     Active Substance: BUPROPION HYDROCHLORIDE
     Indication: DEPRESSION
     Dosage: 200MG TWICE PER DAY
     Route: 048
     Dates: start: 20100504
  5. METFORMIN [Concomitant]
     Active Substance: METFORMIN HYDROCHLORIDE
  6. WARFARIN [Concomitant]
     Active Substance: WARFARIN

REACTIONS (4)
  - Lymphadenectomy [Recovering/Resolving]
  - Colon cancer [Recovering/Resolving]
  - Tumour excision [Recovering/Resolving]
  - Malaise [Unknown]

NARRATIVE: CASE EVENT DATE: 201311
